FAERS Safety Report 7102862-6 (Version None)
Quarter: 2010Q4

REPORT INFORMATION
  Report Type: 
  Country: None (occurrence: None)
  Receive Date: 20101108
  Receipt Date: 20101021
  Transmission Date: 20110411
  Serious: Yes (Death, Life-Threatening, Hospitalization)
  Sender: FDA-Public Use
  Company Number: 2009BI007177

PATIENT
  Age: 59 Year
  Sex: Male

DRUGS (22)
  1. ZEVALIN [Suspect]
     Indication: FOLLICLE CENTRE LYMPHOMA, FOLLICULAR GRADE I, II, III STAGE IV
     Dosage: 944 MBQ; 1X; IV
     Route: 042
     Dates: start: 20090210, end: 20090217
  2. RITUXIMAB [Concomitant]
  3. ACINON [Concomitant]
  4. MS CONTIN [Concomitant]
  5. ANTIHISTAMINES [Concomitant]
  6. OTHER ANALGESICS [Concomitant]
  7. ANTIPYRETICS [Concomitant]
  8. ITRIZOLE [Concomitant]
  9. IMMUNE GLOBULIN INTRAVENOUS (HUMAN) [Concomitant]
  10. RITUXIMAB [Concomitant]
  11. CYCLOPHOSPHAMIDE [Concomitant]
  12. DOXORUBICIN [Concomitant]
  13. VINCRISTINE [Concomitant]
  14. PREDNISOLONE [Concomitant]
  15. CLADRIBINE [Concomitant]
  16. MITOXANTRONE [Concomitant]
  17. DEXAMETHASONE [Concomitant]
  18. ETOPOSIDE [Concomitant]
  19. METHYLPREDNISOLONE [Concomitant]
  20. CYTARABINE [Concomitant]
  21. CISPLATIN [Concomitant]
  22. FLUDARABINE [Concomitant]

REACTIONS (31)
  - ACUTE RESPIRATORY DISTRESS SYNDROME [None]
  - ANAEMIA [None]
  - ARTERIOSCLEROSIS [None]
  - BLOOD PRESSURE DECREASED [None]
  - BRAIN OEDEMA [None]
  - CARDIAC HYPERTROPHY [None]
  - CAROTID ARTERIOSCLEROSIS [None]
  - CAROTID ARTERY OCCLUSION [None]
  - CEREBRAL ARTERY EMBOLISM [None]
  - CEREBRAL INFARCTION [None]
  - CHOLESTASIS [None]
  - DIABETES INSIPIDUS [None]
  - DIFFUSE ALVEOLAR DAMAGE [None]
  - DRUG INEFFECTIVE [None]
  - FLUID OVERLOAD [None]
  - HYPOXIA [None]
  - INTERSTITIAL LUNG DISEASE [None]
  - JAUNDICE [None]
  - LEFT VENTRICULAR FAILURE [None]
  - MYOCARDIAL INFARCTION [None]
  - OPPORTUNISTIC INFECTION [None]
  - PANCREATIC DISORDER [None]
  - PLATELET COUNT DECREASED [None]
  - PLEURAL EFFUSION [None]
  - PULMONARY FIBROSIS [None]
  - PULMONARY HAEMORRHAGE [None]
  - PULMONARY THROMBOSIS [None]
  - RENAL ATROPHY [None]
  - RENAL HYPERTROPHY [None]
  - RENAL INFARCT [None]
  - WHITE BLOOD CELL COUNT DECREASED [None]
